FAERS Safety Report 6788405-5 (Version None)
Quarter: 2010Q2

REPORT INFORMATION
  Report Type: 
  Country: None (occurrence: None)
  Receive Date: 20100623
  Receipt Date: 20080229
  Transmission Date: 20101027
  Serious: No
  Sender: FDA-Public Use
  Company Number: US-PFIZER INC-2008019331

PATIENT

DRUGS (1)
  1. SOMAVERT [Suspect]

REACTIONS (1)
  - INSULIN-LIKE GROWTH FACTOR INCREASED [None]
